FAERS Safety Report 6698220-9 (Version None)
Quarter: 2010Q2

REPORT INFORMATION
  Report Type: 
  Country: None (occurrence: None)
  Receive Date: 20100427
  Receipt Date: 20100416
  Transmission Date: 20101027
  Serious: Yes (Other)
  Sender: FDA-Public Use
  Company Number: IL-BRISTOL-MYERS SQUIBB COMPANY-15073588

PATIENT
  Age: 75 Year
  Sex: Female

DRUGS (1)
  1. MITOMYCIN-C [Suspect]
     Indication: CONJUNCTIVAL PRIMARY ACQUIRED MELANOSIS
     Dosage: 2COURSES-0.04%MMC
     Route: 031

REACTIONS (2)
  - CORNEAL EPITHELIUM DEFECT [None]
  - VISUAL ACUITY REDUCED [None]
